FAERS Safety Report 6995149-3 (Version None)
Quarter: 2010Q3

REPORT INFORMATION
  Report Type: 
  Country: None (occurrence: None)
  Receive Date: 20100915
  Receipt Date: 20100907
  Transmission Date: 20110219
  Serious: Yes (Other)
  Sender: FDA-Public Use
  Company Number: USA/USA/10/0015672

PATIENT
  Age: 50 Year
  Sex: Female

DRUGS (1)
  1. RANITIDINE [Suspect]
     Indication: PRODUCT USED FOR UNKNOWN INDICATION
     Dosage: 150 MG, TWO TABS 4-5 TIMES A DAY
     Dates: start: 20100101

REACTIONS (2)
  - ANAEMIA [None]
  - HAEMORRHAGE [None]
